FAERS Safety Report 14304531 (Version 1)
Quarter: 2017Q4

REPORT INFORMATION
  Report Type: Spontaneous
  Country: JP (occurrence: JP)
  Receive Date: 20171219
  Receipt Date: 20171219
  Transmission Date: 20180321
  Serious: Yes (Disabling, Other)
  Sender: FDA-Public Use
  Company Number: JP-OTSUKA-JP-2013-13690

PATIENT
  Age: 30 Year
  Sex: Female

DRUGS (1)
  1. ABILIFY [Suspect]
     Active Substance: ARIPIPRAZOLE
     Dosage: UNK
     Route: 048
     Dates: start: 200907, end: 200909

REACTIONS (2)
  - Nephritis [Unknown]
  - Renal impairment [Unknown]
